FAERS Safety Report 19277336 (Version 1)
Quarter: 2021Q2

REPORT INFORMATION
  Report Type: Spontaneous
  Country: US (occurrence: US)
  Receive Date: 20210519
  Receipt Date: 20210519
  Transmission Date: 20210717
  Serious: No
  Sender: FDA-Public Use
  Company Number: US-JNJFOC-20210459230

PATIENT
  Sex: Female

DRUGS (1)
  1. WOMENS ROGAINE UNSCENTED [Suspect]
     Active Substance: MINOXIDIL
     Indication: ALOPECIA UNIVERSALIS
     Route: 061
     Dates: start: 202102

REACTIONS (3)
  - Suspected product tampering [Unknown]
  - Off label use [Unknown]
  - Product use in unapproved indication [Unknown]
